FAERS Safety Report 14925357 (Version 5)
Quarter: 2018Q3

REPORT INFORMATION
  Report Type: Spontaneous
  Country: ES (occurrence: ES)
  Receive Date: 20180522
  Receipt Date: 20180820
  Transmission Date: 20181010
  Serious: Yes (Hospitalization, Other)
  Sender: FDA-Public Use
  Company Number: ES-BAYER-2018-097598

PATIENT
  Age: 74 Year
  Sex: Male

DRUGS (17)
  1. TIGECYCLINE. [Suspect]
     Active Substance: TIGECYCLINE
     Indication: MYCOBACTERIUM CHELONAE INFECTION
     Dosage: UNK
  2. ACENOCOUMAROL [Concomitant]
     Active Substance: ACENOCOUMAROL
  3. AMIKACIN. [Concomitant]
     Active Substance: AMIKACIN
  4. TEDIZOLID PHOSPHATE. [Suspect]
     Active Substance: TEDIZOLID PHOSPHATE
     Indication: INFECTIVE MESENTERIC PANNICULITIS
     Dosage: UNK
     Route: 048
  5. MOXIFLOXACIN ORAL [Suspect]
     Active Substance: MOXIFLOXACIN
     Indication: ANTIBIOTIC THERAPY
     Dosage: UNK
  6. ACENOCOUMAROL [Concomitant]
     Active Substance: ACENOCOUMAROL
     Dosage: UNK
  7. ACENOCOUMAROL [Concomitant]
     Active Substance: ACENOCOUMAROL
  8. TOBRAMYCIN. [Suspect]
     Active Substance: TOBRAMYCIN
     Indication: ANTIBIOTIC THERAPY
  9. ACENOCOUMAROL [Concomitant]
     Active Substance: ACENOCOUMAROL
  10. ACENOCOUMAROL [Concomitant]
     Active Substance: ACENOCOUMAROL
  11. ACENOCOUMAROL [Concomitant]
     Active Substance: ACENOCOUMAROL
  12. ACENOCOUMAROL [Concomitant]
     Active Substance: ACENOCOUMAROL
  13. RIFABUTIN. [Concomitant]
     Active Substance: RIFABUTIN
  14. ACENOCOUMAROL [Concomitant]
     Active Substance: ACENOCOUMAROL
  15. AMOXICILLIN AND CLAVULANATE POTASSIUM [Concomitant]
     Active Substance: AMOXICILLIN\CLAVULANATE POTASSIUM
  16. AZITHROMYCIN ANHYDROUS. [Suspect]
     Active Substance: AZITHROMYCIN ANHYDROUS
     Indication: MYCOBACTERIUM CHELONAE INFECTION
     Dosage: UNK
  17. ACENOCOUMAROL [Concomitant]
     Active Substance: ACENOCOUMAROL

REACTIONS (7)
  - Anaemia [Unknown]
  - Acute kidney injury [Unknown]
  - Neuropathy peripheral [Unknown]
  - Pulmonary embolism [Unknown]
  - Product use in unapproved indication [Unknown]
  - Pancreatitis acute [Unknown]
  - Mycobacterium chelonae infection [Unknown]
